FAERS Safety Report 8474761 (Version 4)
Quarter: 2017Q4

REPORT INFORMATION
  Report Type: Report from Study
  Country: DE (occurrence: DE)
  Receive Date: 20120323
  Receipt Date: 20171220
  Transmission Date: 20180321
  Serious: Yes (Life-Threatening, Other)
  Sender: FDA-Public Use
  Company Number: DE-CELGENEUS-062-50794-12031805

PATIENT
  Age: 68 Year
  Sex: Female

DRUGS (12)
  1. CYTARABINE. [Suspect]
     Active Substance: CYTARABINE
     Indication: ACUTE MYELOID LEUKAEMIA
     Dosage: 3600 MILLIGRAM
     Route: 065
     Dates: start: 20120222, end: 20120224
  2. POSACONAZOL [Concomitant]
     Active Substance: POSACONAZOLE
     Route: 065
     Dates: start: 20120114, end: 20120220
  3. METRONIDAZOLE. [Concomitant]
     Active Substance: METRONIDAZOLE
     Indication: PRODUCT USED FOR UNKNOWN INDICATION
     Route: 065
     Dates: start: 20120303, end: 20120306
  4. TAZOBAC [Concomitant]
     Active Substance: PIPERACILLIN SODIUM\TAZOBACTAM SODIUM
     Route: 065
     Dates: start: 20120303, end: 20120312
  5. ACICLOVIR [Concomitant]
     Active Substance: ACYCLOVIR
     Indication: PRODUCT USED FOR UNKNOWN INDICATION
     Route: 065
     Dates: start: 20120214, end: 20120312
  6. AZACITIDINE. [Suspect]
     Active Substance: AZACITIDINE
     Dosage: 180 MILLIGRAM
     Route: 050
     Dates: start: 20120107, end: 20120611
  7. CIPROBAY [Concomitant]
     Active Substance: CIPROFLOXACIN
     Dosage: 400/500MG
     Route: 065
     Dates: start: 20120107
  8. TAZOBAC [Concomitant]
     Active Substance: PIPERACILLIN SODIUM\TAZOBACTAM SODIUM
     Indication: PRODUCT USED FOR UNKNOWN INDICATION
     Route: 065
     Dates: start: 20120106, end: 20120202
  9. CIPROBAY [Concomitant]
     Active Substance: CIPROFLOXACIN
     Indication: PRODUCT USED FOR UNKNOWN INDICATION
     Dosage: 400/500MG
     Route: 065
     Dates: start: 20120303, end: 20120323
  10. POSACONAZOL [Concomitant]
     Active Substance: POSACONAZOLE
     Indication: PRODUCT USED FOR UNKNOWN INDICATION
     Route: 065
     Dates: start: 20111125, end: 20121214
  11. AZACITIDINE. [Suspect]
     Active Substance: AZACITIDINE
     Indication: ACUTE MYELOID LEUKAEMIA
     Dosage: 180 MILLIGRAM
     Route: 050
     Dates: start: 20111124, end: 20111129
  12. NEUPOGEN [Concomitant]
     Active Substance: FILGRASTIM
     Indication: PRODUCT USED FOR UNKNOWN INDICATION
     Route: 065
     Dates: start: 20120302, end: 20120323

REACTIONS (2)
  - Septic shock [Recovered/Resolved]
  - Gallbladder adenocarcinoma [Recovered/Resolved]

NARRATIVE: CASE EVENT DATE: 20120303
